FAERS Safety Report 16897383 (Version 4)
Quarter: 2021Q3

REPORT INFORMATION
  Report Type: Spontaneous
  Country: US (occurrence: US)
  Receive Date: 20191009
  Receipt Date: 20210917
  Transmission Date: 20211014
  Serious: Yes (Other)
  Sender: FDA-Public Use
  Company Number: US-BIOGEN-2017BI00457006

PATIENT
  Age: 53 Year
  Sex: Female

DRUGS (37)
  1. AMPYRA [Suspect]
     Active Substance: DALFAMPRIDINE
     Indication: MULTIPLE SCLEROSIS
     Route: 050
     Dates: start: 20170622, end: 20171115
  2. AVONEX [Suspect]
     Active Substance: INTERFERON BETA-1A
  3. AVONEX [Suspect]
     Active Substance: INTERFERON BETA-1A
  4. AVONEX PEN [Suspect]
     Active Substance: INTERFERON BETA-1A
     Indication: MULTIPLE SCLEROSIS
     Dosage: INJECT 0.5 MLS (30 MCG TOTAL) INTO THE MUSCLE EVERY 7 DAYS
     Route: 030
  5. TYLENOL WITH CODEINE [Concomitant]
     Active Substance: ACETAMINOPHEN\CODEINE PHOSPHATE
     Indication: PRODUCT USED FOR UNKNOWN INDICATION
     Route: 050
  6. BACLOFEN. [Concomitant]
     Active Substance: BACLOFEN
     Indication: PRODUCT USED FOR UNKNOWN INDICATION
     Route: 050
  7. GABAPENTIN. [Concomitant]
     Active Substance: GABAPENTIN
     Indication: PRODUCT USED FOR UNKNOWN INDICATION
     Route: 048
  8. HYDROXYZINE [Concomitant]
     Active Substance: HYDROXYZINE HYDROCHLORIDE
     Indication: PRODUCT USED FOR UNKNOWN INDICATION
     Route: 048
  9. AVONEX [Suspect]
     Active Substance: INTERFERON BETA-1A
     Indication: MULTIPLE SCLEROSIS
     Route: 065
  10. AVONEX [Suspect]
     Active Substance: INTERFERON BETA-1A
  11. AVONEX PEN [Suspect]
     Active Substance: INTERFERON BETA-1A
  12. AVONEX PEN [Suspect]
     Active Substance: INTERFERON BETA-1A
  13. VITAMIN C [Concomitant]
     Active Substance: ASCORBIC ACID
     Indication: PRODUCT USED FOR UNKNOWN INDICATION
     Route: 048
  14. AMPYRA [Suspect]
     Active Substance: DALFAMPRIDINE
     Dosage: 10 MG, Q 12 HRS
     Route: 065
     Dates: end: 201808
  15. AVONEX [Suspect]
     Active Substance: INTERFERON BETA-1A
  16. AVONEX [Suspect]
     Active Substance: INTERFERON BETA-1A
  17. AVONEX [Suspect]
     Active Substance: INTERFERON BETA-1A
  18. KLOR?CON [Concomitant]
     Active Substance: POTASSIUM CHLORIDE
     Indication: PRODUCT USED FOR UNKNOWN INDICATION
     Route: 050
  19. VALTREX [Concomitant]
     Active Substance: VALACYCLOVIR HYDROCHLORIDE
     Indication: PRODUCT USED FOR UNKNOWN INDICATION
     Route: 050
  20. FERROUS SULFATE. [Concomitant]
     Active Substance: FERROUS SULFATE
     Indication: PRODUCT USED FOR UNKNOWN INDICATION
     Dosage: 1 TABLET QD
     Route: 050
  21. OXYBUTYNIN. [Concomitant]
     Active Substance: OXYBUTYNIN CHLORIDE
     Indication: PRODUCT USED FOR UNKNOWN INDICATION
     Route: 048
  22. AVONEX [Suspect]
     Active Substance: INTERFERON BETA-1A
  23. AVONEX [Suspect]
     Active Substance: INTERFERON BETA-1A
  24. AMLODIPINE [Concomitant]
     Active Substance: AMLODIPINE BESYLATE
     Indication: PRODUCT USED FOR UNKNOWN INDICATION
     Route: 050
  25. POTASSIUM [Concomitant]
     Active Substance: POTASSIUM
     Indication: PRODUCT USED FOR UNKNOWN INDICATION
     Dosage: 2 TABS QD
     Route: 050
  26. AMANTADINE. [Concomitant]
     Active Substance: AMANTADINE HYDROCHLORIDE
     Indication: PRODUCT USED FOR UNKNOWN INDICATION
     Route: 048
  27. AVONEX [Suspect]
     Active Substance: INTERFERON BETA-1A
  28. AVONEX [Suspect]
     Active Substance: INTERFERON BETA-1A
  29. AVONEX [Suspect]
     Active Substance: INTERFERON BETA-1A
  30. AVONEX [Suspect]
     Active Substance: INTERFERON BETA-1A
  31. AVONEX PEN [Suspect]
     Active Substance: INTERFERON BETA-1A
  32. VITAMIN D [Concomitant]
     Active Substance: VITAMIN D NOS
     Indication: PRODUCT USED FOR UNKNOWN INDICATION
     Route: 048
  33. OMEPRAZOLE. [Concomitant]
     Active Substance: OMEPRAZOLE
     Indication: PRODUCT USED FOR UNKNOWN INDICATION
     Route: 050
  34. NASCOBAL [Concomitant]
     Active Substance: CYANOCOBALAMIN
     Indication: PRODUCT USED FOR UNKNOWN INDICATION
     Dosage: 1 SPRAY IN EACH NOSTRIL ONCE WEEKLY
     Route: 050
  35. IRON [Concomitant]
     Active Substance: IRON
     Indication: PRODUCT USED FOR UNKNOWN INDICATION
     Route: 048
  36. VITAMIN B12 [Concomitant]
     Active Substance: CYANOCOBALAMIN
     Indication: PRODUCT USED FOR UNKNOWN INDICATION
     Route: 048
  37. MICARDIS [Concomitant]
     Active Substance: TELMISARTAN
     Indication: PRODUCT USED FOR UNKNOWN INDICATION
     Route: 050

REACTIONS (3)
  - Basedow^s disease [Unknown]
  - Hypersensitivity [Recovered/Resolved]
  - Anaphylactic shock [Recovered/Resolved]

NARRATIVE: CASE EVENT DATE: 20170625
